FAERS Safety Report 16852064 (Version 1)
Quarter: 2019Q3

REPORT INFORMATION
  Report Type: Other
  Country: CN (occurrence: CN)
  Receive Date: 20190925
  Receipt Date: 20190925
  Transmission Date: 20191005
  Serious: Yes (Death, Hospitalization, Other)
  Sender: FDA-Public Use
  Company Number: CN-NEOPHARMA INC-000224

PATIENT
  Age: 21 Year
  Sex: Male

DRUGS (3)
  1. CETUXIMAB. [Suspect]
     Active Substance: CETUXIMAB
     Indication: COLORECTAL CANCER METASTATIC
     Dosage: 500 MG/M2 CETUXIMAB IV OVER 2 H ON DAY 1 EVERY 2 WEEKS
     Route: 042
     Dates: start: 20161209
  2. CAPECITABINE. [Suspect]
     Active Substance: CAPECITABINE
     Indication: COLORECTAL CANCER METASTATIC
     Dosage: 1000 MG/M2, TWICE PO DAILY FOR 14 DAYS, WHICH WAS REPEATED EVERY 3 WEEKS
     Route: 048
     Dates: start: 20161118
  3. IRINOTECAN HYDROCHLORIDE. [Suspect]
     Active Substance: IRINOTECAN HYDROCHLORIDE
     Indication: COLORECTAL CANCER METASTATIC
     Dosage: 180MG/M2 IV OVER 30-90 MIN ON DAY 1
     Route: 042
     Dates: start: 20170331

REACTIONS (5)
  - Ascites [Unknown]
  - Infection [Unknown]
  - Disease progression [Fatal]
  - Hypocalcaemia [Unknown]
  - Death [Fatal]

NARRATIVE: CASE EVENT DATE: 20170519
